FAERS Safety Report 20164472 (Version 1)
Quarter: 2021Q4

REPORT INFORMATION
  Report Type: Spontaneous
  Country: US (occurrence: US)
  Receive Date: 20211209
  Receipt Date: 20211209
  Transmission Date: 20220303
  Serious: Yes (Hospitalization, Other)
  Sender: FDA-Public Use
  Company Number: US-SA-2021SA408925

PATIENT
  Age: 92 Year
  Sex: Female

DRUGS (2)
  1. PLAVIX [Suspect]
     Active Substance: CLOPIDOGREL BISULFATE
     Indication: Antiplatelet therapy
     Dosage: UNK
  2. ELIQUIS [Suspect]
     Active Substance: APIXABAN
     Indication: Atrial fibrillation
     Dosage: UNK

REACTIONS (6)
  - Gastrointestinal tract mucosal pigmentation [Unknown]
  - Anaemia [Unknown]
  - Haematochezia [Unknown]
  - Asthenia [Unknown]
  - Fatigue [Unknown]
  - Pallor [Unknown]
